FAERS Safety Report 8167742-6 (Version None)
Quarter: 2012Q1

REPORT INFORMATION
  Report Type: 
  Country: None (occurrence: None)
  Receive Date: 20120227
  Receipt Date: 20120217
  Transmission Date: 20120608
  Serious: Yes (Other)
  Sender: FDA-Public Use
  Company Number: PL-JNJFOC-20120205009

PATIENT
  Age: 24 Year
  Sex: Female

DRUGS (1)
  1. USTEKINUMAB [Suspect]
     Indication: PSORIASIS
     Route: 058
     Dates: start: 20100801, end: 20110201

REACTIONS (3)
  - PSORIATIC ARTHROPATHY [None]
  - DRUG INEFFECTIVE [None]
  - OFF LABEL USE [None]
